FAERS Safety Report 23988877 (Version 1)
Quarter: 2024Q2

REPORT INFORMATION
  Report Type: Spontaneous
  Country: TR (occurrence: TR)
  Receive Date: 20240619
  Receipt Date: 20240619
  Transmission Date: 20240716
  Serious: Yes (Other)
  Sender: FDA-Public Use
  Company Number: TR-DSJP-DSE-2024-126753

PATIENT
  Age: 43 Year
  Sex: Male
  Weight: 82 kg

DRUGS (2)
  1. EDOXABAN TOSYLATE [Suspect]
     Active Substance: EDOXABAN TOSYLATE
     Indication: Deep vein thrombosis
     Dosage: 60 MG, QD (DAILY)
     Route: 065
  2. WARFMADIN [Concomitant]
     Indication: Product used for unknown indication
     Dosage: 5 MG
     Route: 048
     Dates: start: 20231201

REACTIONS (9)
  - Nausea [Not Recovered/Not Resolved]
  - Dry skin [Recovered/Resolved]
  - Vision blurred [Not Recovered/Not Resolved]
  - Fatigue [Not Recovered/Not Resolved]
  - Contusion [Recovered/Resolved]
  - Faeces discoloured [Recovered/Resolved]
  - Pruritus [Not Recovered/Not Resolved]
  - Mouth haemorrhage [Recovered/Resolved]
  - Headache [Not Recovered/Not Resolved]

NARRATIVE: CASE EVENT DATE: 20231201
